FAERS Safety Report 15695161 (Version 1)
Quarter: 2018Q4

REPORT INFORMATION
  Report Type: Spontaneous
  Country: US (occurrence: US)
  Receive Date: 20181206
  Receipt Date: 20181206
  Transmission Date: 20190205
  Serious: No
  Sender: FDA-Public Use
  Company Number: US-ENDO PHARMACEUTICALS INC-2018-038455

PATIENT
  Age: 53 Year
  Sex: Male
  Weight: 108.84 kg

DRUGS (4)
  1. XIAFLEX [Suspect]
     Active Substance: COLLAGENASE CLOSTRIDIUM HISTOLYTICUM
     Indication: PEYRONIE^S DISEASE
     Dosage: CYCLE 2, INJECTION 2
     Route: 026
     Dates: start: 20180517
  2. XIAFLEX [Suspect]
     Active Substance: COLLAGENASE CLOSTRIDIUM HISTOLYTICUM
     Dosage: CYCLE 1, INJECTION 1
     Route: 026
     Dates: start: 20180327
  3. XIAFLEX [Suspect]
     Active Substance: COLLAGENASE CLOSTRIDIUM HISTOLYTICUM
     Dosage: CYCLE 2, INJECTION 1
     Route: 026
     Dates: start: 20180515
  4. XIAFLEX [Suspect]
     Active Substance: COLLAGENASE CLOSTRIDIUM HISTOLYTICUM
     Dosage: CYCLE 1, INJECTION 2
     Route: 026
     Dates: start: 2018

REACTIONS (2)
  - Penile erythema [Unknown]
  - Penile swelling [Unknown]

NARRATIVE: CASE EVENT DATE: 201805
